FAERS Safety Report 10853382 (Version 1)
Quarter: 2015Q1

REPORT INFORMATION
  Report Type: Spontaneous
  Country: US (occurrence: US)
  Receive Date: 20150223
  Receipt Date: 20150223
  Transmission Date: 20150721
  Serious: No
  Sender: FDA-Public Use
  Company Number: US-BIOGENIDEC-2015BI011025

PATIENT
  Age: 57 Year
  Sex: Female

DRUGS (10)
  1. OXYCODONE HCI [Concomitant]
  2. DONEPEZIL HCI [Concomitant]
  3. VITAMIN D2 [Concomitant]
     Active Substance: ERGOCALCIFEROL
  4. TRAZODONE HCI [Concomitant]
  5. VITAMIN C ER [Concomitant]
  6. OXYBUTYNIN CHLORIDE ER [Concomitant]
  7. DULOXETINE HCI [Concomitant]
  8. WELLBUTRIN [Concomitant]
     Active Substance: BUPROPION HYDROCHLORIDE
  9. TECFIDERA [Suspect]
     Active Substance: DIMETHYL FUMARATE
     Indication: MULTIPLE SCLEROSIS
     Route: 048
     Dates: start: 20130724
  10. CYMBALTA [Concomitant]
     Active Substance: DULOXETINE HYDROCHLORIDE

REACTIONS (1)
  - Bladder spasm [Unknown]

NARRATIVE: CASE EVENT DATE: 20150122
